FAERS Safety Report 7780082-X (Version None)
Quarter: 2011Q3

REPORT INFORMATION
  Report Type: 
  Country: None (occurrence: None)
  Receive Date: 20110927
  Receipt Date: 20110916
  Transmission Date: 20111222
  Serious: Yes (Hospitalization)
  Sender: FDA-Public Use
  Company Number: DK-MPIJNJ-2011-04324

PATIENT

DRUGS (10)
  1. FORTECORTIN                        /00016001/ [Concomitant]
     Indication: MULTIPLE MYELOMA
     Dosage: UNK
     Route: 048
     Dates: start: 20110321
  2. SIMVASTATIN [Concomitant]
     Dosage: 40 UNK, UNK
     Dates: start: 20110211
  3. VELCADE [Suspect]
     Indication: MULTIPLE MYELOMA
     Dosage: UNK
     Route: 042
     Dates: start: 20110321
  4. CENTYL [Concomitant]
     Indication: HYPERTENSION
     Dosage: 5 MG, UNK
     Route: 048
     Dates: start: 20110211
  5. FUROSEMIDE [Concomitant]
     Indication: HYPERTENSION
     Dosage: UNK
     Dates: start: 20110509
  6. PAMIDRONATE DISODIUM [Concomitant]
     Dosage: UNK
     Dates: start: 20100531
  7. PAMOL                              /00020001/ [Concomitant]
     Indication: BACK PAIN
     Dosage: 500 MG, UNK
     Route: 048
     Dates: start: 20110211
  8. LOSARTAN POTASSIUM [Concomitant]
  9. DIOVAN [Suspect]
     Indication: HYPERTENSION
     Dosage: 125 MG, UNK
     Route: 048
     Dates: start: 20110211
  10. TRAMADOL HCL [Concomitant]
     Indication: BACK PAIN
     Dosage: UNK
     Dates: start: 20100211

REACTIONS (5)
  - AORTIC STENOSIS [None]
  - CEREBROVASCULAR ACCIDENT [None]
  - DIZZINESS POSTURAL [None]
  - FATIGUE [None]
  - ORTHOSTATIC HYPOTENSION [None]
